FAERS Safety Report 4319950-X (Version None)
Quarter: 2004Q1

REPORT INFORMATION
  Report Type: 
  Country: None (occurrence: None)
  Receive Date: 20040316
  Receipt Date: 20040301
  Transmission Date: 20041129
  Serious: Yes (Hospitalization)
  Sender: FDA-Public Use
  Company Number: 172040

PATIENT
  Age: 52 Year
  Sex: Male
  Weight: 84.8226 kg

DRUGS (9)
  1. AVONEX [Suspect]
     Indication: MULTIPLE SCLEROSIS
     Dosage: 30 MCG QW IM
     Route: 030
     Dates: start: 20020403, end: 20030401
  2. ALTACE [Concomitant]
  3. ASPIRIN [Concomitant]
  4. PAXIL [Concomitant]
  5. AGRYLIN [Concomitant]
  6. PLAVIX [Concomitant]
  7. FOLGARD [Concomitant]
  8. PREVACID [Concomitant]
  9. VITAMIN CAP [Concomitant]

REACTIONS (26)
  - AMPUTATION [None]
  - ANGIOPLASTY [None]
  - ANXIETY [None]
  - ATHEROSCLEROSIS [None]
  - BLOOD LACTATE DEHYDROGENASE INCREASED [None]
  - BLOOD POTASSIUM DECREASED [None]
  - CELLULITIS [None]
  - DILATATION ATRIAL [None]
  - DYSPEPSIA [None]
  - DYSPNOEA [None]
  - GASTROINTESTINAL DISORDER [None]
  - HEADACHE [None]
  - HEART RATE INCREASED [None]
  - HYPERTENSION [None]
  - HYPERVENTILATION [None]
  - INSOMNIA [None]
  - LIVEDO RETICULARIS [None]
  - MYOCARDIAL ISCHAEMIA [None]
  - PERIPHERAL ISCHAEMIA [None]
  - POLYCYTHAEMIA VERA [None]
  - PURPURA [None]
  - RESPIRATORY DISORDER [None]
  - SKIN ULCER [None]
  - STENT OCCLUSION [None]
  - THROMBOCYTHAEMIA [None]
  - VENTRICULAR HYPERTROPHY [None]
